FAERS Safety Report 12325039 (Version 4)
Quarter: 2016Q4

REPORT INFORMATION
  Report Type: Report from Study
  Country: US (occurrence: US)
  Receive Date: 20160502
  Receipt Date: 20161229
  Transmission Date: 20170207
  Serious: Yes (Disabling)
  Sender: FDA-Public Use
  Company Number: US-SA-2015SA218741

PATIENT
  Age: 56 Year
  Sex: Female

DRUGS (1)
  1. LEMTRADA [Suspect]
     Active Substance: ALEMTUZUMAB
     Indication: MULTIPLE SCLEROSIS
     Route: 041
     Dates: start: 20151214, end: 20151218

REACTIONS (13)
  - Bone density abnormal [Unknown]
  - Paronychia [Recovering/Resolving]
  - Urinary tract infection [Not Recovered/Not Resolved]
  - Flushing [Recovered/Resolved]
  - Pain in extremity [Unknown]
  - Wound [Unknown]
  - Oedema peripheral [Unknown]
  - Drug ineffective [Unknown]
  - Walking disability [Not Recovered/Not Resolved]
  - Asthenia [Not Recovered/Not Resolved]
  - Skin discolouration [Recovering/Resolving]
  - Bladder catheterisation [Unknown]
  - Movement disorder [Not Recovered/Not Resolved]

NARRATIVE: CASE EVENT DATE: 201512
